FAERS Safety Report 16217506 (Version 2)
Quarter: 2019Q2

REPORT INFORMATION
  Report Type: Report from Study
  Country: DK (occurrence: DK)
  Receive Date: 20190419
  Receipt Date: 20190426
  Transmission Date: 20190711
  Serious: Yes (Hospitalization)
  Sender: FDA-Public Use
  Company Number: DK-JNJFOC-20190415630

PATIENT
  Age: 43 Year
  Sex: Female

DRUGS (6)
  1. PANTOPRAZOL [Concomitant]
     Active Substance: PANTOPRAZOLE SODIUM
     Route: 065
     Dates: start: 20170717
  2. ADPORT [Concomitant]
     Active Substance: TACROLIMUS
     Route: 065
     Dates: start: 20171026
  3. IBRUTINIB [Suspect]
     Active Substance: IBRUTINIB
     Indication: CHRONIC LYMPHOCYTIC LEUKAEMIA
     Route: 048
     Dates: start: 20190124
  4. MESALAZIN [Concomitant]
     Active Substance: MESALAMINE
     Route: 065
     Dates: start: 20170516
  5. VITAMIN D2 [Concomitant]
     Active Substance: ERGOCALCIFEROL
     Route: 065
     Dates: start: 20150312
  6. URSOCHOL [Concomitant]
     Active Substance: URSODIOL
     Indication: CHOLESTASIS
     Route: 065
     Dates: start: 20150312

REACTIONS (2)
  - Enterocolitis [Unknown]
  - Gastroenteritis [Recovered/Resolved]

NARRATIVE: CASE EVENT DATE: 20190408
